FAERS Safety Report 4537204-3 (Version None)
Quarter: 2004Q4

REPORT INFORMATION
  Report Type: 
  Country: None (occurrence: None)
  Receive Date: 20041223
  Receipt Date: 20041220
  Transmission Date: 20050328
  Serious: Yes (Other)
  Sender: FDA-Public Use
  Company Number: PHFR2004GB04637

PATIENT
  Age: 77 Year
  Sex: Female

DRUGS (7)
  1. TERBINAFINE HCL [Suspect]
     Indication: SYSTEMIC MYCOSIS
     Dosage: ONE IN THE MORNING
     Route: 048
     Dates: start: 20041018, end: 20041125
  2. CO-PROXAMOL [Concomitant]
     Dosage: 1OR2 4TIMES/DAY
     Route: 065
     Dates: start: 19960219
  3. ASPIRIN [Concomitant]
     Dosage: 1 TWICE/DAY
     Dates: start: 20001017
  4. DIPROBASE [Concomitant]
     Dosage: 3 X PER DAY
     Dates: start: 20030801
  5. VENLAFAXINE HCL [Concomitant]
     Dosage: 1 AT NIGHT
     Dates: start: 20040211
  6. IBUPROFEN [Concomitant]
     Dosage: PRN
     Dates: start: 20040701
  7. CLOBETASONE [Concomitant]
     Dates: end: 20041012

REACTIONS (1)
  - CONFUSIONAL STATE [None]
